FAERS Safety Report 20429719 (Version 3)
Quarter: 2022Q1

REPORT INFORMATION
  Report Type: Spontaneous
  Country: US (occurrence: US)
  Receive Date: 20220204
  Receipt Date: 20220321
  Transmission Date: 20220423
  Serious: Yes (Death)
  Sender: FDA-Public Use
  Company Number: US-SAREPTA THERAPEUTICS INC.-SRP2022-002012

PATIENT
  Age: 30 Year
  Sex: Male
  Weight: 56.689 kg

DRUGS (2)
  1. EXONDYS 51 [Suspect]
     Active Substance: ETEPLIRSEN
     Indication: Duchenne muscular dystrophy
     Dosage: 2150 MILLIGRAM, WEEKLY
     Route: 042
  2. DEFLAZACORT [Concomitant]
     Active Substance: DEFLAZACORT
     Indication: Product used for unknown indication
     Dosage: 30 MILLIGRAM, QD

REACTIONS (2)
  - Cardiomyopathy [Fatal]
  - COVID-19 [Fatal]

NARRATIVE: CASE EVENT DATE: 20220101
